FAERS Safety Report 5764093-1 (Version None)
Quarter: 2008Q2

REPORT INFORMATION
  Report Type: 
  Country: None (occurrence: None)
  Receive Date: 20080609
  Receipt Date: 20080417
  Transmission Date: 20081010
  Serious: No
  Sender: FDA-Public Use
  Company Number: 002#2#2008-00258

PATIENT
  Age: 46 Year
  Sex: Male
  Weight: 63.5036 kg

DRUGS (7)
  1. NEUPRO [Suspect]
     Indication: PARKINSON'S DISEASE
     Dosage: 2MG/24H, 1 IN 1 D, TRANSDERMAL
     Route: 062
     Dates: start: 20080201, end: 20080414
  2. CARBIDOPA [Concomitant]
  3. LIPITOR [Concomitant]
  4. POTASSIUM CHLORIDE [Concomitant]
  5. FUROSEMIDE [Concomitant]
  6. AMANTADINE HCL [Concomitant]
  7. ASPIRIN [Concomitant]

REACTIONS (1)
  - RASH [None]
